FAERS Safety Report 9349326 (Version 2)
Quarter: 2013Q2

REPORT INFORMATION
  Report Type: Spontaneous
  Country: CN (occurrence: CN)
  Receive Date: 20130614
  Receipt Date: 20130628
  Transmission Date: 20140414
  Serious: Yes (Other)
  Sender: FDA-Public Use
  Company Number: CN-ABBOTT-13X-035-1104629-00

PATIENT
  Age: 24 Year
  Sex: Male

DRUGS (1)
  1. DEPAKINE CHRONO [Suspect]
     Indication: EPILEPSY
     Dosage: EXTENDED-RELEASE TABLET, 500 MILLIGRAM(S) ;TWICE A DAY
     Route: 048
     Dates: start: 2008

REACTIONS (8)
  - Trismus [Unknown]
  - Epilepsy [Recovered/Resolved]
  - Convulsion [Recovered/Resolved]
  - Fall [Unknown]
  - Unevaluable event [Unknown]
  - Head banging [Unknown]
  - Loss of consciousness [Recovered/Resolved]
  - Product counterfeit [Unknown]
